FAERS Safety Report 7939361-5 (Version None)
Quarter: 2011Q4

REPORT INFORMATION
  Report Type: 
  Country: None (occurrence: None)
  Receive Date: 20111125
  Receipt Date: 20110415
  Transmission Date: 20120403
  Serious: No
  Sender: FDA-Public Use
  Company Number: US-BAYER-2011-078230

PATIENT
  Age: 56 Year
  Sex: Female

DRUGS (7)
  1. LEUKINE [Suspect]
     Indication: NON-HODGKIN'S LYMPHOMA
     Dosage: UNK
     Dates: start: 20110404
  2. ASPIRIN [Concomitant]
     Dosage: 1/2 TABLET, QD
  3. TOPROL-XL [Concomitant]
     Dosage: 50 DF, QD
  4. GABAPENTIN [Concomitant]
     Dosage: 600 MG, TID
  5. LEUKINE [Suspect]
     Dosage: UNK
     Dates: start: 20110405
  6. ALPRAZOLAM [Concomitant]
     Dosage: 1 MG, TID
  7. ALTACE [Concomitant]
     Dosage: 5 MG, QD

REACTIONS (2)
  - INJECTION SITE SWELLING [None]
  - OEDEMA PERIPHERAL [None]
